FAERS Safety Report 4641314-X (Version None)
Quarter: 2005Q2

REPORT INFORMATION
  Report Type: 
  Country: None (occurrence: None)
  Receive Date: 20050419
  Receipt Date: 20050407
  Transmission Date: 20051028
  Serious: Yes (Hospitalization, Disabling, Congenital Anomaly)
  Sender: FDA-Public Use
  Company Number: 05P-056-0296848-00

PATIENT
  Sex: Male

DRUGS (1)
  1. VALPROATE SODIUM [Suspect]
     Indication: DRUG EXPOSURE DURING PREGNANCY

REACTIONS (11)
  - CAMPTODACTYLY CONGENITAL [None]
  - CONGENITAL ANOMALY [None]
  - CONGENITAL CYSTIC KIDNEY DISEASE [None]
  - CONGENITAL FOOT MALFORMATION [None]
  - CONGENITAL NOSE MALFORMATION [None]
  - DRUG EXPOSURE DURING PREGNANCY [None]
  - FACIAL DYSMORPHISM [None]
  - HYPOTONIA NEONATAL [None]
  - JOINT DISLOCATION [None]
  - LOW SET EARS [None]
  - URETEROCELE [None]
